FAERS Safety Report 4752005-9 (Version None)
Quarter: 2005Q3

REPORT INFORMATION
  Report Type: 
  Country: None (occurrence: None)
  Receive Date: 20050824
  Receipt Date: 20050311
  Transmission Date: 20060218
  Serious: Yes (Hospitalization)
  Sender: FDA-Public Use
  Company Number: US-MERCK-0503USA02786

PATIENT
  Age: 56 Year
  Sex: Male
  Weight: 123 kg

DRUGS (17)
  1. ASPIRIN [Concomitant]
     Indication: INFLAMMATION
     Route: 065
     Dates: start: 20010101
  2. ZOCOR [Concomitant]
     Indication: BLOOD CHOLESTEROL INCREASED
     Route: 048
     Dates: start: 20010101
  3. CELEBREX [Concomitant]
     Indication: ARTHRALGIA
     Route: 065
     Dates: start: 20010101, end: 20040101
  4. CELEBREX [Concomitant]
     Indication: INFLAMMATION
     Route: 065
     Dates: start: 20010101, end: 20040101
  5. ETODOLAC [Concomitant]
     Route: 065
     Dates: start: 20040101
  6. LISINOPRIL [Concomitant]
     Indication: HYPERTENSION
     Route: 065
     Dates: start: 19970101
  7. HYDROCODONE HYDROCHLORIDE [Concomitant]
     Indication: PAIN
     Route: 065
  8. AMITRIPTYLINE HYDROCHLORIDE [Concomitant]
     Indication: SLEEP DISORDER THERAPY
     Route: 065
  9. VALIUM [Concomitant]
     Indication: ANXIETY
     Route: 065
  10. VIOXX [Suspect]
     Indication: ARTHRITIS
     Route: 048
     Dates: start: 20030101, end: 20040901
  11. ASPIRIN [Concomitant]
     Indication: PAIN
     Route: 065
     Dates: start: 20010101
  12. VALIUM [Concomitant]
     Indication: MUSCLE SPASMS
     Route: 065
  13. OMEPRAZOLE [Concomitant]
     Indication: DYSPEPSIA
     Route: 065
  14. INSULIN [Concomitant]
     Indication: DIABETES MELLITUS
     Route: 065
  15. [THERAPY UNSPECIFIED] [Concomitant]
     Indication: DIABETES MELLITUS
     Route: 065
  16. ROSIGLITAZONE MALEATE [Concomitant]
     Indication: DIABETES MELLITUS
     Route: 065
  17. LEVOTHYROXINE SODIUM [Concomitant]
     Indication: HYPOTHYROIDISM
     Route: 065

REACTIONS (5)
  - ANGINA PECTORIS [None]
  - ATHEROSCLEROSIS [None]
  - CARDIAC DISORDER [None]
  - CORONARY ARTERY DISEASE [None]
  - MYOCARDIAL INFARCTION [None]
